FAERS Safety Report 6376100-6 (Version None)
Quarter: 2009Q3

REPORT INFORMATION
  Report Type: 
  Country: None (occurrence: None)
  Receive Date: 20090921
  Receipt Date: 20090910
  Transmission Date: 20100115
  Serious: Yes (Other)
  Sender: FDA-Public Use
  Company Number: 230177K09GBR

PATIENT
  Age: 50 Year
  Sex: Female

DRUGS (1)
  1. REBIF [Suspect]
     Dosage: 44 MCG
     Dates: start: 20090115

REACTIONS (4)
  - HAEMORRHAGIC CYST [None]
  - PAIN [None]
  - SWELLING [None]
  - SYNOVIAL CYST [None]
